FAERS Safety Report 16422306 (Version 1)
Quarter: 2019Q2

REPORT INFORMATION
  Report Type: Spontaneous
  Country: GB (occurrence: GB)
  Receive Date: 20190612
  Receipt Date: 20190612
  Transmission Date: 20190711
  Serious: Yes (Death)
  Sender: FDA-Public Use
  Company Number: PHHY2019GB134003

PATIENT
  Age: 41 Year
  Sex: Female
  Weight: 53 kg

DRUGS (6)
  1. MEROPENEM. [Concomitant]
     Active Substance: MEROPENEM
     Indication: ALLOGENIC STEM CELL TRANSPLANTATION
     Dosage: 3 G, QD
     Route: 042
     Dates: start: 20180221, end: 20180309
  2. POSACONAZOLE [Concomitant]
     Active Substance: POSACONAZOLE
     Indication: ALLOGENIC STEM CELL TRANSPLANTATION
     Dosage: 300 MG, QD
     Route: 048
     Dates: start: 20180215, end: 20180228
  3. VANCOMYCIN [Concomitant]
     Active Substance: VANCOMYCIN
     Indication: ALLOGENIC STEM CELL TRANSPLANTATION
     Dosage: 150 MG, QD
     Route: 042
     Dates: start: 20180309, end: 20180309
  4. ONDANSETRON [Suspect]
     Active Substance: ONDANSETRON
     Indication: NAUSEA
     Dosage: 8 MG, OT
     Route: 042
     Dates: start: 20180214
  5. OMEPRAZOLE. [Concomitant]
     Active Substance: OMEPRAZOLE
     Indication: ALLOGENIC STEM CELL TRANSPLANTATION
     Dosage: 20 MG, QD
     Route: 042
     Dates: start: 20180219, end: 20180309
  6. AMBISOM [Concomitant]
     Active Substance: AMPHOTERICIN B
     Indication: ALLOGENIC STEM CELL TRANSPLANTATION
     Dosage: 50 MG, OT (MONDAY, WEDNESDAY, FRIDAY)
     Route: 042
     Dates: start: 20180228, end: 20180309

REACTIONS (2)
  - Malaise [Fatal]
  - Pulseless electrical activity [Fatal]

NARRATIVE: CASE EVENT DATE: 20190309
